FAERS Safety Report 10356917 (Version 2)
Quarter: 2014Q3

REPORT INFORMATION
  Report Type: Spontaneous
  Country: US (occurrence: US)
  Receive Date: 20140801
  Receipt Date: 20140801
  Transmission Date: 20150326
  Serious: No
  Sender: FDA-Public Use
  Company Number: US-DRREDDYS-USA/USA/14/0037121

PATIENT
  Age: 75 Year
  Sex: Male

DRUGS (3)
  1. SIMVASTATIN 20 MG [Concomitant]
     Active Substance: SIMVASTATIN
     Indication: BLOOD CHOLESTEROL
     Route: 065
  2. OMEPRAZOLE MAGNESIUM DELAYED RELEASE OTC [Suspect]
     Active Substance: OMEPRAZOLE MAGNESIUM
     Indication: GASTROOESOPHAGEAL REFLUX DISEASE
     Route: 048
  3. DOXAZOCIN [Concomitant]
     Active Substance: DOXAZOSIN MESYLATE
     Indication: HYPERTENSION
     Route: 065

REACTIONS (3)
  - Sinusitis [Not Recovered/Not Resolved]
  - Drug ineffective [Unknown]
  - Product quality issue [Unknown]
